FAERS Safety Report 11861773 (Version 2)
Quarter: 2016Q1

REPORT INFORMATION
  Report Type: Spontaneous
  Country: US (occurrence: US)
  Receive Date: 20151222
  Receipt Date: 20160125
  Transmission Date: 20160526
  Serious: No
  Sender: FDA-Public Use
  Company Number: US-PFIZER INC-2015394419

PATIENT
  Sex: Female

DRUGS (2)
  1. DEPO-PROVERA [Suspect]
     Active Substance: MEDROXYPROGESTERONE ACETATE
     Dosage: UNK, EVERY 3 MONTHS
     Route: 030
  2. DEPO-PROVERA [Suspect]
     Active Substance: MEDROXYPROGESTERONE ACETATE
     Indication: CONTRACEPTION
     Dosage: UNK, EVERY 3 MONTHS
     Route: 058

REACTIONS (2)
  - Injection site vesicles [Unknown]
  - Incorrect route of drug administration [Unknown]
